FAERS Safety Report 10415976 (Version 1)
Quarter: 2014Q3

REPORT INFORMATION
  Report Type: Spontaneous
  Country: JP (occurrence: None)
  Receive Date: 20140826
  Receipt Date: 20140826
  Transmission Date: 20150326
  Serious: Yes (Hospitalization)
  Sender: FDA-Public Use
  Company Number: B1015656A

PATIENT
  Age: 35 Year
  Sex: Female

DRUGS (4)
  1. ZOLPIDEM TARTRATE. [Concomitant]
     Active Substance: ZOLPIDEM TARTRATE
  2. ETIZOLAM [Concomitant]
     Active Substance: ETIZOLAM
  3. CLONAZEPAM. [Concomitant]
     Active Substance: CLONAZEPAM
  4. PAROXETINE HYDROCHLORIDE TABLET-CONTROLLED RELEASE (PAROXETINE HYDROCHLORIDE) [Suspect]
     Active Substance: PAROXETINE HYDROCHLORIDE
     Indication: DEPRESSION
     Route: 048

REACTIONS (3)
  - Intentional overdose [None]
  - Suicide attempt [None]
  - Coma [None]

NARRATIVE: CASE EVENT DATE: 20140715
